FAERS Safety Report 14140744 (Version 5)
Quarter: 2018Q2

REPORT INFORMATION
  Report Type: Spontaneous
  Country: US (occurrence: US)
  Receive Date: 20171030
  Receipt Date: 20180416
  Transmission Date: 20180711
  Serious: No
  Sender: FDA-Public Use
  Company Number: US-PFIZER INC-2017464811

PATIENT
  Age: 43 Year
  Sex: Male

DRUGS (4)
  1. ZOLOFT [Suspect]
     Active Substance: SERTRALINE HYDROCHLORIDE
     Indication: DEPRESSION
     Dosage: UNK
     Dates: start: 2005, end: 2006
  2. ZOLOFT [Suspect]
     Active Substance: SERTRALINE HYDROCHLORIDE
     Dosage: 100 MG, DAILY (QAM EVERY DAY BEFORE NOON)
     Route: 048
     Dates: start: 20061016
  3. ZOLOFT [Suspect]
     Active Substance: SERTRALINE HYDROCHLORIDE
     Dosage: 100 MG, DAILY (QAM EVERY DAY BEFORE NOON)
     Route: 048
     Dates: start: 20060725
  4. ZOLOFT [Suspect]
     Active Substance: SERTRALINE HYDROCHLORIDE
     Dosage: 50 MG, DAILY (QAM EVERY DAY BEFORE NOON)
     Route: 048
     Dates: start: 20060807

REACTIONS (7)
  - Muscle disorder [Unknown]
  - Heart rate irregular [Unknown]
  - Tremor [Unknown]
  - Muscle rigidity [Unknown]
  - Orgasm abnormal [Unknown]
  - Heart rate increased [Unknown]
  - Disorientation [Unknown]

NARRATIVE: CASE EVENT DATE: 2007
